FAERS Safety Report 6451921-X (Version None)
Quarter: 2009Q4

REPORT INFORMATION
  Report Type: 
  Country: None (occurrence: None)
  Receive Date: 20091123
  Receipt Date: 20091113
  Transmission Date: 20100525
  Serious: Yes (Hospitalization)
  Sender: FDA-Public Use
  Company Number: US-AMGEN-QUU374418

PATIENT
  Sex: Female

DRUGS (2)
  1. SENSIPAR [Suspect]
     Indication: HYPERPARATHYROIDISM SECONDARY
  2. UNSPECIFIED MEDICATION [Concomitant]

REACTIONS (2)
  - DEPENDENCE ON ENABLING MACHINE OR DEVICE [None]
  - ENDOTRACHEAL INTUBATION [None]
